FAERS Safety Report 9342683 (Version 2)
Quarter: 2013Q3

REPORT INFORMATION
  Report Type: Spontaneous
  Country: US (occurrence: None)
  Receive Date: 20130607
  Receipt Date: 20130715
  Transmission Date: 20140515
  Serious: Yes (Hospitalization)
  Sender: FDA-Public Use
  Company Number: ACO_34132_2013

PATIENT
  Age: 50 Year
  Sex: Female
  Weight: 95.2 kg

DRUGS (4)
  1. AMPYRA [Suspect]
     Indication: MULTIPLE SCLEROSIS
     Route: 048
     Dates: start: 201204, end: 2013
  2. AMPYRA [Suspect]
     Indication: GAIT DISTURBANCE
     Route: 048
     Dates: start: 201204, end: 2013
  3. BACLOFEN (BACLOFEN), 10 MG [Concomitant]
  4. ASPIRIN (ACETYLSALICYLIC ACID) [Concomitant]

REACTIONS (5)
  - Multiple sclerosis relapse [None]
  - Hypertension [None]
  - Feeling abnormal [None]
  - Gait disturbance [None]
  - Headache [None]
